FAERS Safety Report 9536442 (Version 1)
Quarter: 2013Q3

REPORT INFORMATION
  Report Type: Report from Study
  Country: US (occurrence: US)
  Receive Date: 20130919
  Receipt Date: 20130919
  Transmission Date: 20140515
  Serious: Yes (Death, Other)
  Sender: FDA-Public Use
  Company Number: US-NAPPMUNDI-USA-2013-0106362

PATIENT
  Age: 66 Year
  Sex: Female

DRUGS (1)
  1. OXYCONTIN (NDA 22-272) [Suspect]
     Indication: NEOPLASM MALIGNANT
     Dosage: 80 MG, Q12H
     Route: 048
     Dates: start: 201307, end: 20130904

REACTIONS (3)
  - Malignant neoplasm progression [Unknown]
  - Bone pain [Unknown]
  - Death [Fatal]
